FAERS Safety Report 15266996 (Version 1)
Quarter: 2018Q3

REPORT INFORMATION
  Report Type: Spontaneous
  Country: GB (occurrence: GB)
  Receive Date: 20180810
  Receipt Date: 20180810
  Transmission Date: 20181010
  Serious: Yes (Other)
  Sender: FDA-Public Use
  Company Number: GB-ALLERGAN-1839543US

PATIENT
  Age: 53 Year
  Sex: Male

DRUGS (1)
  1. ACAMPROSATE CALCIUM ? BP [Suspect]
     Active Substance: ACAMPROSATE CALCIUM
     Indication: PRODUCT USED FOR UNKNOWN INDICATION
     Dosage: UNK, UNKNOWN
     Route: 065

REACTIONS (4)
  - Loss of consciousness [Unknown]
  - Weight decreased [Unknown]
  - Sciatica [Unknown]
  - Depressed mood [Unknown]

NARRATIVE: CASE EVENT DATE: 20180620
